FAERS Safety Report 13638692 (Version 1)
Quarter: 2017Q2

REPORT INFORMATION
  Report Type: Spontaneous
  Country: NO (occurrence: NO)
  Receive Date: 20170609
  Receipt Date: 20170609
  Transmission Date: 20170830
  Serious: Yes (Other)
  Sender: FDA-Public Use
  Company Number: NO-ELI_LILLY_AND_COMPANY-NO201706001342

PATIENT
  Age: 10 Year
  Sex: Male

DRUGS (2)
  1. VALLERGAN [Concomitant]
     Active Substance: TRIMEPRAZINE
     Indication: INSOMNIA
     Dosage: 20 MG, EACH EVENING
     Route: 048
     Dates: start: 20170415
  2. STRATTERA [Suspect]
     Active Substance: ATOMOXETINE HYDROCHLORIDE
     Indication: ATTENTION DEFICIT/HYPERACTIVITY DISORDER
     Dosage: 28 MG, DAILY
     Route: 048
     Dates: start: 20170419

REACTIONS (2)
  - Suicidal behaviour [Recovered/Resolved]
  - Erythema [Unknown]

NARRATIVE: CASE EVENT DATE: 20170512
